FAERS Safety Report 13297994 (Version 3)
Quarter: 2017Q1

REPORT INFORMATION
  Report Type: Spontaneous
  Country: HU (occurrence: HU)
  Receive Date: 20170306
  Receipt Date: 20170329
  Transmission Date: 20170428
  Serious: Yes (Death, Hospitalization)
  Sender: FDA-Public Use
  Company Number: HU-ELI_LILLY_AND_COMPANY-HU201702010956

PATIENT
  Age: 63 Year
  Sex: Female

DRUGS (8)
  1. PANTOPRAZOLE [Concomitant]
     Active Substance: PANTOPRAZOLE SODIUM
  2. PROPAFENON                         /00546301/ [Concomitant]
     Active Substance: PROPAFENONE
  3. FOLIC ACID. [Concomitant]
     Active Substance: FOLIC ACID
  4. PACLITAXEL. [Suspect]
     Active Substance: PACLITAXEL
     Indication: PRODUCT USED FOR UNKNOWN INDICATION
     Dosage: UNK, UNKNOWN
     Dates: start: 20161215
  5. SPIRONOLAKTON [Concomitant]
     Active Substance: SPIRONOLACTONE
  6. CYRAMZA [Suspect]
     Active Substance: RAMUCIRUMAB
     Indication: PRODUCT USED FOR UNKNOWN INDICATION
     Dosage: UNK UNK, UNKNOWN
     Route: 065
     Dates: start: 20151215
  7. ENOXAPARINE SODIQUE [Concomitant]
     Active Substance: ENOXAPARIN SODIUM
  8. IRON [Concomitant]
     Active Substance: IRON

REACTIONS (4)
  - Malignant neoplasm progression [Fatal]
  - Dehydration [Unknown]
  - Ileus [Unknown]
  - General physical health deterioration [Unknown]
